FAERS Safety Report 12435030 (Version 1)
Quarter: 2016Q2

REPORT INFORMATION
  Report Type: Spontaneous
  Country: US (occurrence: US)
  Receive Date: 20160603
  Receipt Date: 20160603
  Transmission Date: 20160815
  Serious: No
  Sender: FDA-Public Use
  Company Number: US-ROCHE-1583766

PATIENT
  Sex: Female

DRUGS (3)
  1. XELODA [Suspect]
     Active Substance: CAPECITABINE
     Route: 048
     Dates: start: 20151110
  2. XELODA [Suspect]
     Active Substance: CAPECITABINE
     Indication: NEOPLASM MALIGNANT
     Dosage: 4 TABS (2000 MG) IN AM, 3 TABS (1500 MG) IN PM 7 DAYS OFF
     Route: 048
     Dates: start: 20150508
  3. XELODA [Suspect]
     Active Substance: CAPECITABINE
     Dosage: 4 IN AM AND THEN 3 IN PM
     Route: 048
     Dates: start: 20150602

REACTIONS (4)
  - Nausea [Unknown]
  - Skin exfoliation [Not Recovered/Not Resolved]
  - Nasopharyngitis [Recovered/Resolved]
  - Pain [Not Recovered/Not Resolved]
